FAERS Safety Report 10062119 (Version 1)
Quarter: 2014Q2

REPORT INFORMATION
  Report Type: Spontaneous
  Country: US (occurrence: None)
  Receive Date: 20140405
  Receipt Date: 20140405
  Transmission Date: 20141212
  Serious: Yes (Other)
  Sender: FDA-Public Use
  Company Number: None

PATIENT
  Age: 50 Year
  Sex: Female

DRUGS (1)
  1. INVOKANA [Suspect]

REACTIONS (5)
  - Thirst [None]
  - Dry mouth [None]
  - Dry throat [None]
  - Urinary tract infection [None]
  - Vulvovaginal dryness [None]
